FAERS Safety Report 9574249 (Version 2)
Quarter: 2013Q4

REPORT INFORMATION
  Report Type: Spontaneous
  Country: US (occurrence: US)
  Receive Date: 20131001
  Receipt Date: 20131001
  Transmission Date: 20140711
  Serious: Yes (Other)
  Sender: FDA-Public Use
  Company Number: US-NAPPMUNDI-USA-2012-0082876

PATIENT
  Age: 59 Year
  Sex: Male

DRUGS (1)
  1. BUTRANS [Suspect]
     Indication: MIGRAINE
     Dosage: 5 MCG/HR, DAILY
     Route: 062
     Dates: start: 20120130

REACTIONS (7)
  - Somnolence [Recovered/Resolved]
  - Syncope [Unknown]
  - Nausea [Unknown]
  - Blood pressure abnormal [Unknown]
  - Vomiting [Recovered/Resolved]
  - Drug effect increased [Unknown]
  - Product quality issue [Unknown]
